FAERS Safety Report 6243295-4 (Version None)
Quarter: 2009Q2

REPORT INFORMATION
  Report Type: 
  Country: None (occurrence: None)
  Receive Date: 20090622
  Receipt Date: 20090622
  Transmission Date: 20091009
  Serious: Yes (Other)
  Sender: FDA-Public Use
  Company Number: None

PATIENT
  Age: 53 Year
  Sex: Female
  Weight: 56.6996 kg

DRUGS (2)
  1. ZICAM NASAL SPRAY [Suspect]
     Indication: SINUS CONGESTION
     Dosage: AS DIRECTED ON PACKAGE AS DIRECTED NASAL 1-2 WEEKS
     Route: 045
  2. ZICAM NASAL GEL [Suspect]
     Indication: SINUS CONGESTION
     Dosage: AS DIRECTED ON PACKAGE AS DIRECTED NASAL 1-2 WEEKS
     Route: 045

REACTIONS (2)
  - HYPOGEUSIA [None]
  - HYPOSMIA [None]
